FAERS Safety Report 5714368-7 (Version None)
Quarter: 2008Q2

REPORT INFORMATION
  Report Type: 
  Country: None (occurrence: None)
  Receive Date: 20080423
  Receipt Date: 20080410
  Transmission Date: 20081010
  Serious: Yes (Other)
  Sender: FDA-Public Use
  Company Number: BE-JNJFOC-20080103781

PATIENT
  Sex: Female

DRUGS (2)
  1. IMODIUM [Suspect]
     Indication: DIARRHOEA
     Route: 048
  2. CLOMID [Concomitant]
     Indication: INFERTILITY

REACTIONS (3)
  - ABORTION SPONTANEOUS [None]
  - DRUG EXPOSURE DURING PREGNANCY [None]
  - OVERDOSE [None]
